FAERS Safety Report 5464240-5 (Version None)
Quarter: 2007Q3

REPORT INFORMATION
  Report Type: 
  Country: None (occurrence: None)
  Receive Date: 20070921
  Receipt Date: 20070907
  Transmission Date: 20080115
  Serious: Yes (Other)
  Sender: FDA-Public Use
  Company Number: JP-ROCHE-491391

PATIENT
  Age: 33 Year
  Sex: Female

DRUGS (3)
  1. TAMIFLU [Suspect]
     Indication: INFLUENZA
     Route: 048
     Dates: start: 20070316, end: 20070316
  2. TAMIFLU [Suspect]
     Route: 048
     Dates: start: 20070317, end: 20070319
  3. TAMIFLU [Suspect]
     Route: 048
     Dates: start: 20070320, end: 20070320

REACTIONS (2)
  - LIVER DISORDER [None]
  - RENAL DISORDER [None]
